FAERS Safety Report 7935811-9 (Version None)
Quarter: 2011Q4

REPORT INFORMATION
  Report Type: 
  Country: None (occurrence: None)
  Receive Date: 20111123
  Receipt Date: 20111114
  Transmission Date: 20120403
  Serious: Yes (Other)
  Sender: FDA-Public Use
  Company Number: ZA-JNJFOC-20111106362

PATIENT
  Age: 10 Year
  Sex: Male

DRUGS (3)
  1. CONCERTA [Suspect]
     Indication: PRODUCT USED FOR UNKNOWN INDICATION
     Dosage: 54 MG OF CONCERTA IN THE MORNING AND 36 MG OF CONCERTA IN THE AFTERNOON
     Route: 048
  2. VALPROATE SODIUM [Concomitant]
     Route: 065
  3. RISPERDAL [Concomitant]
     Route: 065

REACTIONS (1)
  - OVERDOSE [None]
